FAERS Safety Report 20558546 (Version 1)
Quarter: 2022Q1

REPORT INFORMATION
  Report Type: Spontaneous
  Country: US (occurrence: US)
  Receive Date: 20220307
  Receipt Date: 20220307
  Transmission Date: 20220423
  Serious: No
  Sender: FDA-Public Use
  Company Number: US-SA-2022SA069284

PATIENT
  Sex: Male

DRUGS (5)
  1. ADMELOG [Suspect]
     Active Substance: INSULIN LISPRO
     Indication: Diabetes mellitus
  2. APIDRA [Suspect]
     Active Substance: INSULIN GLULISINE
     Indication: Diabetes mellitus
  3. LANTUS [Concomitant]
     Active Substance: INSULIN GLARGINE
  4. LEVEMIR [Concomitant]
     Active Substance: INSULIN DETEMIR
  5. NOVOLOG [Concomitant]
     Active Substance: INSULIN ASPART

REACTIONS (2)
  - Therapeutic product effect delayed [Unknown]
  - Product storage error [Unknown]
